FAERS Safety Report 10760213 (Version 1)
Quarter: 2015Q1

REPORT INFORMATION
  Report Type: Spontaneous
  Country: US (occurrence: US)
  Receive Date: 20150204
  Receipt Date: 20150204
  Transmission Date: 20150721
  Serious: Yes (Other)
  Sender: FDA-Public Use
  Company Number: US-AMGEN-USASP2014076315

PATIENT
  Age: 79 Year
  Sex: Female

DRUGS (1)
  1. PROLIA [Suspect]
     Active Substance: DENOSUMAB
     Indication: OSTEOPOROSIS POSTMENOPAUSAL
     Dosage: UNK
     Route: 065

REACTIONS (6)
  - Tricuspid valve disease [Unknown]
  - Toothache [Not Recovered/Not Resolved]
  - Renal disorder [Unknown]
  - Tooth disorder [Unknown]
  - Sleep disorder [Unknown]
  - Pain in jaw [Unknown]

NARRATIVE: CASE EVENT DATE: 201410
